FAERS Safety Report 7514892-0 (Version None)
Quarter: 2011Q2

REPORT INFORMATION
  Report Type: 
  Country: None (occurrence: None)
  Receive Date: 20110601
  Receipt Date: 20110527
  Transmission Date: 20111010
  Serious: Yes (Other)
  Sender: FDA-Public Use
  Company Number: CN-ASTRAZENECA-2011SE32807

PATIENT
  Age: 84 Year
  Sex: Male

DRUGS (4)
  1. PREDNISONE [Interacting]
     Route: 048
  2. OMEPRAZOLE [Suspect]
     Route: 048
  3. THEOPHYLLINE [Interacting]
     Route: 042
  4. CLONAZEPAM [Interacting]
     Route: 048

REACTIONS (1)
  - DRUG INTERACTION [None]
